FAERS Safety Report 19483831 (Version 1)
Quarter: 2021Q3

REPORT INFORMATION
  Report Type: Spontaneous
  Country: US (occurrence: US)
  Receive Date: 20210701
  Receipt Date: 20210701
  Transmission Date: 20211014
  Serious: Yes (Other)
  Sender: FDA-Public Use
  Company Number: US-BAUSCH-BL-2021-021770

PATIENT
  Age: 54 Year
  Sex: Female
  Weight: 96.7 kg

DRUGS (3)
  1. LUMIFY [Suspect]
     Active Substance: BRIMONIDINE TARTRATE
     Indication: PRODUCT USE IN UNAPPROVED INDICATION
  2. LUMIFY [Suspect]
     Active Substance: BRIMONIDINE TARTRATE
     Indication: EYE PRURITUS
     Dosage: STARTED APPROXIMATELY 26/APR/2021; ONE DROP IN EACH EYE ONCE A DAY
     Route: 047
     Dates: start: 202104, end: 202104
  3. LUMIFY [Suspect]
     Active Substance: BRIMONIDINE TARTRATE
     Indication: LACRIMATION INCREASED

REACTIONS (8)
  - Eye irritation [Unknown]
  - Product use in unapproved indication [Unknown]
  - Strabismus [Not Recovered/Not Resolved]
  - Eye haemorrhage [Unknown]
  - Blindness [Unknown]
  - Lacrimation increased [Unknown]
  - Impaired quality of life [Unknown]
  - Eye pain [Not Recovered/Not Resolved]

NARRATIVE: CASE EVENT DATE: 2021
